FAERS Safety Report 22646043 (Version 1)
Quarter: 2023Q2

REPORT INFORMATION
  Report Type: Spontaneous
  Country: US (occurrence: None)
  Receive Date: 20230626
  Receipt Date: 20230626
  Transmission Date: 20230722
  Serious: Yes (Hospitalization, Disabling, Other)
  Sender: FDA-Public Use
  Company Number: None

PATIENT
  Age: 74 Year
  Sex: Female
  Weight: 67.5 kg

DRUGS (1)
  1. SEMAGLUTIDE [Suspect]
     Active Substance: SEMAGLUTIDE
     Indication: Weight decreased
     Dosage: OTHER QUANTITY : 1 INJECTION(S);?OTHER FREQUENCY : EVERY 7 DAYS;?
     Route: 058
     Dates: start: 20230606, end: 20230606

REACTIONS (6)
  - Vomiting projectile [None]
  - Dehydration [None]
  - Feeding disorder [None]
  - Product use in unapproved indication [None]
  - Prescribed overdose [None]
  - Insurance issue [None]

NARRATIVE: CASE EVENT DATE: 20230606
